FAERS Safety Report 26176666 (Version 1)
Quarter: 2025Q4

REPORT INFORMATION
  Report Type: Spontaneous
  Country: US (occurrence: US)
  Receive Date: 20251218
  Receipt Date: 20251218
  Transmission Date: 20260117
  Serious: No
  Sender: BIOMARIN
  Company Number: US-BIOMARINAP-US-2025-170664

PATIENT
  Sex: Female

DRUGS (2)
  1. PALYNZIQ [Suspect]
     Active Substance: PEGVALIASE-PQPZ
     Indication: Product used for unknown indication
     Dosage: 10 MILLIGRAM
  2. PALYNZIQ [Suspect]
     Active Substance: PEGVALIASE-PQPZ

REACTIONS (1)
  - Arthralgia [Recovering/Resolving]
